FAERS Safety Report 6111835-1 (Version None)
Quarter: 2009Q1

REPORT INFORMATION
  Report Type: 
  Country: None (occurrence: None)
  Receive Date: 20090311
  Receipt Date: 20090309
  Transmission Date: 20090719
  Serious: Yes (Death)
  Sender: FDA-Public Use
  Company Number: FR-WYE-G03283509

PATIENT
  Sex: Female

DRUGS (1)
  1. ADVIL [Suspect]
     Indication: INFLUENZA
     Dosage: UNKNOWN
     Route: 048
     Dates: start: 20090104, end: 20090110

REACTIONS (2)
  - GASTRITIS HAEMORRHAGIC [None]
  - PNEUMONIA [None]
